FAERS Safety Report 23749693 (Version 3)
Quarter: 2024Q2

REPORT INFORMATION
  Report Type: Spontaneous
  Country: JP (occurrence: JP)
  Receive Date: 20240416
  Receipt Date: 20240501
  Transmission Date: 20240716
  Serious: Yes (Hospitalization)
  Sender: FDA-Public Use
  Company Number: JP-NBI-BS202400067

PATIENT
  Age: 64 Year
  Sex: Female
  Weight: 53.7 kg

DRUGS (2)
  1. JARDIANCE [Suspect]
     Active Substance: EMPAGLIFLOZIN
     Indication: Cardiac failure
     Route: 048
  2. SACUBITRIL VALSARTAN SODIUM HYDRATE [Suspect]
     Active Substance: SACUBITRIL VALSARTAN SODIUM HYDRATE
     Indication: Cardiac failure
     Route: 048

REACTIONS (1)
  - Cardiac failure [Not Recovered/Not Resolved]
